FAERS Safety Report 8514824-2 (Version None)
Quarter: 2012Q3

REPORT INFORMATION
  Report Type: 
  Country: None (occurrence: None)
  Receive Date: 20120717
  Receipt Date: 20120706
  Transmission Date: 20120928
  Serious: Yes (Life-Threatening)
  Sender: FDA-Public Use
  Company Number: NO-BAXTER-2012BAX010676

PATIENT
  Sex: Male

DRUGS (4)
  1. LIPITOR [Concomitant]
     Route: 048
  2. METOPROLOL SUCCINATE [Concomitant]
     Route: 048
  3. VELCADE [Suspect]
     Route: 041
     Dates: start: 20120531
  4. SENDOXAN 1000 MG PULVER TIL INJEKSJONSV?SKE, OPPL?SNING [Suspect]
     Route: 041
     Dates: start: 20120531

REACTIONS (1)
  - MYOCARDIAL INFARCTION [None]
